FAERS Safety Report 5537458-0 (Version None)
Quarter: 2007Q4

REPORT INFORMATION
  Report Type: 
  Country: None (occurrence: None)
  Receive Date: 20071207
  Receipt Date: 20071204
  Transmission Date: 20080405
  Serious: Yes (Death, Hospitalization)
  Sender: FDA-Public Use
  Company Number: US-BRISTOL-MYERS SQUIBB COMPANY-14004295

PATIENT
  Age: 51 Year
  Sex: Female

DRUGS (1)
  1. ABILIFY [Suspect]
     Indication: MENTAL DISORDER

REACTIONS (1)
  - DEATH [None]
